FAERS Safety Report 5308741-9 (Version None)
Quarter: 2007Q2

REPORT INFORMATION
  Report Type: 
  Country: None (occurrence: None)
  Receive Date: 20070426
  Receipt Date: 20070417
  Transmission Date: 20071010
  Serious: Yes (Death)
  Sender: FDA-Public Use
  Company Number: GT-ROCHE-493702

PATIENT

DRUGS (1)
  1. INVIRASE [Suspect]
     Route: 048
     Dates: end: 20060715

REACTIONS (5)
  - CEREBRAL TOXOPLASMOSIS [None]
  - HEADACHE [None]
  - NAUSEA [None]
  - NEUTROPENIA [None]
  - VOMITING [None]
